FAERS Safety Report 20927469 (Version 1)
Quarter: 2022Q2

REPORT INFORMATION
  Report Type: Spontaneous
  Country: US (occurrence: US)
  Receive Date: 20220607
  Receipt Date: 20220607
  Transmission Date: 20220721
  Serious: No
  Sender: FDA-Public Use
  Company Number: US-RIGEL PHARMACEUTICALS, INC.-2021FOS000481

PATIENT
  Sex: Female

DRUGS (1)
  1. TAVALISSE [Suspect]
     Active Substance: FOSTAMATINIB
     Indication: Immune thrombocytopenia
     Dosage: 100 MG, TID
     Route: 048
     Dates: start: 202008

REACTIONS (4)
  - Muscle strain [Unknown]
  - Muscle spasms [Unknown]
  - Platelet count [Unknown]
  - Inappropriate schedule of product administration [Unknown]
